FAERS Safety Report 5587354-8 (Version None)
Quarter: 2008Q1

REPORT INFORMATION
  Report Type: 
  Country: None (occurrence: None)
  Receive Date: 20080110
  Receipt Date: 20071229
  Transmission Date: 20080703
  Serious: Yes (Other)
  Sender: FDA-Public Use
  Company Number: US-PFIZER INC-2008000624

PATIENT
  Sex: Female
  Weight: 122.72 kg

DRUGS (11)
  1. CHANTIX [Suspect]
     Indication: SMOKING CESSATION THERAPY
     Dates: start: 20071128, end: 20071228
  2. XANAX [Suspect]
     Indication: PANIC ATTACK
  3. PREDNISONE TAB [Suspect]
     Dates: start: 20071201, end: 20071201
  4. THEOPHYLLINE [Concomitant]
     Dates: start: 20071201, end: 20071228
  5. TESSALON [Concomitant]
     Dates: start: 20071201, end: 20071226
  6. BRETHINE [Concomitant]
     Dates: start: 20071201, end: 20071228
  7. PROTONIX [Concomitant]
     Dates: start: 20071201, end: 20071228
  8. AUGMENTIN '250' [Concomitant]
     Dates: start: 20071201, end: 20071215
  9. ZITHROMAX [Concomitant]
     Dates: start: 20071201, end: 20071210
  10. ADVAIR DISKUS 100/50 [Concomitant]
  11. ALBUTEROL [Concomitant]

REACTIONS (4)
  - DEPRESSION [None]
  - PANIC ATTACK [None]
  - SOMNOLENCE [None]
  - SUICIDAL IDEATION [None]
